FAERS Safety Report 9302618 (Version 1)
Quarter: 2013Q2

REPORT INFORMATION
  Report Type: Spontaneous
  Country: US (occurrence: US)
  Receive Date: 20130522
  Receipt Date: 20130522
  Transmission Date: 20140414
  Serious: No
  Sender: FDA-Public Use
  Company Number: US-009507513-1305USA012002

PATIENT
  Sex: Female

DRUGS (3)
  1. MAXALT [Suspect]
     Indication: PROPHYLAXIS
     Route: 048
  2. ELAVIL [Suspect]
     Indication: PROPHYLAXIS
  3. RELPAX [Concomitant]
     Indication: MIGRAINE
     Dosage: APPROXIMATELY 8 TABLETS PER MONTH

REACTIONS (1)
  - Drug ineffective [Unknown]
